FAERS Safety Report 7502283-8 (Version None)
Quarter: 2011Q2

REPORT INFORMATION
  Report Type: 
  Country: None (occurrence: None)
  Receive Date: 20110525
  Receipt Date: 20091123
  Transmission Date: 20111010
  Serious: Yes (Other)
  Sender: FDA-Public Use
  Company Number: US-BAYER-200940847NA

PATIENT
  Age: 58 Year
  Sex: Male
  Weight: 136.5 kg

DRUGS (26)
  1. LOPRESSOR [Concomitant]
     Dosage: 12.5 MG, UNK
     Route: 048
     Dates: start: 20060306
  2. ANCEF [Concomitant]
     Dosage: 1 G, UNK
     Route: 042
     Dates: start: 20060308, end: 20060308
  3. PHENYLEPHRINE HCL [Concomitant]
     Dosage: 500 MICROGRAMS
     Route: 042
     Dates: start: 20060308, end: 20060308
  4. ISOSORBIDE MONONITRATE [Concomitant]
     Dosage: 80MG EVERY MORNING AND 30MG EVERY EVENING
     Route: 048
     Dates: start: 20010101
  5. ACTOS [Concomitant]
     Dosage: 15 MG, QD
     Route: 048
     Dates: start: 20000101
  6. ALEVE (CAPLET) [Concomitant]
     Dosage: UNK
     Route: 048
     Dates: start: 20040101
  7. ACETYLSALICYLIC ACID SRT [Concomitant]
     Dosage: 325 MG, QD
     Route: 048
     Dates: start: 20000101
  8. NITROGLYCERIN [Concomitant]
     Dosage: 1 INCH
     Route: 061
     Dates: start: 20060306
  9. PAVULON [Concomitant]
     Dosage: UNK
     Route: 042
     Dates: start: 20060308, end: 20060308
  10. HEPARIN [Concomitant]
     Dosage: 10000 U, PRIME
     Dates: start: 20060308, end: 20060308
  11. NOVOLIN R [Concomitant]
     Dosage: SLIDING SCALE
     Route: 058
     Dates: start: 20060306
  12. LISINOPRIL [Concomitant]
     Dosage: 40 MG, QD
     Route: 048
     Dates: start: 20000101, end: 20090101
  13. METFORMIN HYDROCHLORIDE [Concomitant]
     Dosage: 500 MG, BID
     Route: 048
     Dates: start: 20000101
  14. NITROGLYCERIN [Concomitant]
     Dosage: 0.4 MG EVERY 5 MINUTES AS NEEDED FOR 3 DOSES
     Route: 060
     Dates: start: 20000101
  15. VYTORIN [Concomitant]
     Dosage: 10/40 DAILY
     Route: 048
     Dates: start: 20040101
  16. NORVASC [Concomitant]
     Dosage: 5 MG, QD
     Route: 048
     Dates: start: 20060306
  17. HEPARIN [Concomitant]
     Dosage: 41000 U, UNK
     Route: 042
     Dates: start: 20060308, end: 20060308
  18. INSULIN [Concomitant]
     Dosage: UNK
     Route: 042
     Dates: start: 20060308, end: 20060308
  19. TRASYLOL [Suspect]
     Indication: CORONARY ARTERY BYPASS
     Dosage: 1ML INITIAL TEST DOSE, 200ML INFUSION FOLLOWED BY 50ML/HOUR INFUSION
     Route: 042
     Dates: start: 20060308, end: 20060308
  20. FENTANYL [Concomitant]
     Dosage: UNK
     Route: 042
     Dates: start: 20060308, end: 20060308
  21. PROPOFOL [Concomitant]
     Dosage: UNK
     Route: 042
     Dates: start: 20060308, end: 20060308
  22. PROTAMINE SULFATE [Concomitant]
     Dosage: 442 MG, UNK
     Route: 042
  23. VASOPRESSIN [Concomitant]
     Dosage: 5.5 U, UNK
     Route: 042
     Dates: start: 20060308, end: 20060308
  24. LIDOCAINE [Concomitant]
     Dosage: 50 MG, UNK
     Route: 042
     Dates: start: 20060308, end: 20060308
  25. VERSED [Concomitant]
     Dosage: 3 MG, UNK
     Route: 042
     Dates: start: 20060308, end: 20060308
  26. DOBUTAMINE HYDROCHLORIDE [Concomitant]
     Dosage: UNK
     Dates: start: 20060308, end: 20060308

REACTIONS (8)
  - PAIN [None]
  - RENAL FAILURE [None]
  - INJURY [None]
  - ANXIETY [None]
  - DEPRESSION [None]
  - UNEVALUABLE EVENT [None]
  - ANHEDONIA [None]
  - FEAR [None]
